FAERS Safety Report 4673571-8 (Version None)
Quarter: 2005Q2

REPORT INFORMATION
  Report Type: 
  Country: None (occurrence: None)
  Receive Date: 20050523
  Receipt Date: 20050513
  Transmission Date: 20051028
  Serious: Yes (Other)
  Sender: FDA-Public Use
  Company Number: FABR-10835

PATIENT
  Age: 51 Year
  Sex: Female
  Weight: 113.3993 kg

DRUGS (10)
  1. FABRAZYME [Suspect]
     Indication: FABRY'S DISEASE
     Dosage: 105 MG QW2KS IV
     Route: 042
     Dates: start: 20040312
  2. IBUPROFEN [Concomitant]
  3. BENADRYL [Concomitant]
  4. LIPITOR [Concomitant]
  5. MONOPRIL [Concomitant]
  6. SYNTHROID [Concomitant]
  7. PROZAC [Concomitant]
  8. TEGRETOL [Concomitant]
  9. PLAVIX [Concomitant]
  10. TYLENOL (CAPLET) [Concomitant]

REACTIONS (10)
  - BLOOD TRIGLYCERIDES INCREASED [None]
  - CAROTID ARTERY DISEASE [None]
  - CEREBROVASCULAR ACCIDENT [None]
  - CONFUSIONAL STATE [None]
  - ELECTROCARDIOGRAM ST SEGMENT ABNORMAL [None]
  - HYPERTENSION [None]
  - PETIT MAL EPILEPSY [None]
  - PULMONARY VALVE INCOMPETENCE [None]
  - TRANSIENT ISCHAEMIC ATTACK [None]
  - TRICUSPID VALVE INCOMPETENCE [None]
